FAERS Safety Report 4475537-X (Version None)
Quarter: 2004Q4

REPORT INFORMATION
  Report Type: 
  Country: None (occurrence: None)
  Receive Date: 20041015
  Receipt Date: 20041007
  Transmission Date: 20050328
  Serious: Yes (Disabling)
  Sender: FDA-Public Use
  Company Number: US-MERCK-0410USA01172

PATIENT
  Age: 83 Year
  Sex: Female

DRUGS (8)
  1. BUMEX [Concomitant]
     Route: 065
  2. ZYRTEC [Concomitant]
     Route: 065
  3. TRUSOPT [Concomitant]
     Route: 047
  4. K-DUR 10 [Concomitant]
     Route: 065
  5. QUININE [Concomitant]
     Route: 065
  6. VIOXX [Suspect]
     Indication: ARTHRITIS
     Route: 048
     Dates: start: 20040901, end: 20040927
  7. VIOXX [Suspect]
     Indication: ARTHRALGIA
     Route: 048
     Dates: start: 20040901, end: 20040927
  8. COUMADIN [Concomitant]
     Route: 065

REACTIONS (3)
  - ARTHRALGIA [None]
  - BACK PAIN [None]
  - CHEST WALL PAIN [None]
